FAERS Safety Report 10486237 (Version 1)
Quarter: 2014Q4

REPORT INFORMATION
  Report Type: Spontaneous
  Country: ES (occurrence: ES)
  Receive Date: 20141001
  Receipt Date: 20141001
  Transmission Date: 20150528
  Serious: Yes (Other)
  Sender: FDA-Public Use
  Company Number: ES-ABBVIE-14P-144-1290019-00

PATIENT
  Age: 63 Year
  Sex: Female

DRUGS (1)
  1. SECALIP 145MG [Suspect]
     Active Substance: FENOFIBRATE
     Indication: DIABETES MELLITUS INADEQUATE CONTROL
     Route: 048
     Dates: start: 20130523, end: 20140904

REACTIONS (3)
  - Abdominal pain upper [Recovered/Resolved]
  - Transaminases increased [Recovered/Resolved]
  - Off label use [Recovered/Resolved]

NARRATIVE: CASE EVENT DATE: 20130523
